FAERS Safety Report 8196043-5 (Version None)
Quarter: 2012Q1

REPORT INFORMATION
  Report Type: 
  Country: None (occurrence: None)
  Receive Date: 20120309
  Receipt Date: 20120305
  Transmission Date: 20120608
  Serious: No
  Sender: FDA-Public Use
  Company Number: US-BIOGENIDEC-2012BI007985

PATIENT
  Age: 48 Year
  Sex: Female

DRUGS (4)
  1. PROZAC [Concomitant]
     Indication: DEPRESSION
  2. TYSABRI [Suspect]
     Route: 042
     Dates: start: 20120213
  3. CITALOPRAM HYDROBROMIDE [Concomitant]
     Indication: DEPRESSION
  4. TYSABRI [Suspect]
     Indication: MULTIPLE SCLEROSIS
     Route: 042
     Dates: start: 20090303, end: 20101102

REACTIONS (3)
  - BLOOD PRESSURE INCREASED [None]
  - HEART RATE DECREASED [None]
  - DRUG EFFECT DECREASED [None]
